FAERS Safety Report 8890848 (Version 2)
Quarter: 2014Q3

REPORT INFORMATION
  Report Type: Report from Study
  Country: US (occurrence: US)
  Receive Date: 20121107
  Receipt Date: 20140905
  Transmission Date: 20150326
  Serious: Yes (Death)
  Sender: FDA-Public Use
  Company Number: US-ROCHE-1130727

PATIENT
  Age: 71 Year
  Sex: Female

DRUGS (19)
  1. ADRIAMYCIN [Concomitant]
     Active Substance: DOXORUBICIN HYDROCHLORIDE
     Route: 065
     Dates: start: 20000518
  2. TYLENOL [Concomitant]
     Active Substance: ACETAMINOPHEN
     Route: 065
     Dates: start: 19991119
  3. HERCEPTIN [Suspect]
     Active Substance: TRASTUZUMAB
     Indication: BREAST CANCER FEMALE
     Dosage: LOADING DOSE 1M6 344 UNITS
     Route: 042
     Dates: start: 19981103, end: 200005
  4. METHOTREXATE [Concomitant]
     Active Substance: METHOTREXATE
  5. NAVELBINE [Concomitant]
     Active Substance: VINORELBINE TARTRATE
     Route: 065
     Dates: start: 20000331
  6. CYTOXAN [Concomitant]
     Active Substance: CYCLOPHOSPHAMIDE
  7. 5-FU [Concomitant]
     Active Substance: FLUOROURACIL
  8. TAXOTERE [Concomitant]
     Active Substance: DOCETAXEL
     Route: 065
     Dates: start: 19991005
  9. TAXOTERE [Concomitant]
     Active Substance: DOCETAXEL
     Route: 065
  10. TYLENOL [Concomitant]
     Active Substance: ACETAMINOPHEN
     Route: 048
     Dates: start: 19990319
  11. HERCEPTIN [Suspect]
     Active Substance: TRASTUZUMAB
     Indication: BREAST CANCER
     Route: 042
     Dates: start: 19991014
  12. HERCEPTIN [Suspect]
     Active Substance: TRASTUZUMAB
     Route: 042
     Dates: start: 20000331
  13. HERCEPTIN [Suspect]
     Active Substance: TRASTUZUMAB
     Route: 042
     Dates: start: 19990511
  14. NAVELBINE [Concomitant]
     Active Substance: VINORELBINE TARTRATE
     Route: 065
     Dates: start: 20000223
  15. TYLENOL [Concomitant]
     Active Substance: ACETAMINOPHEN
     Dosage: AS REQUIRED
     Route: 065
     Dates: start: 20000331
  16. KYTRIL [Concomitant]
     Active Substance: GRANISETRON HYDROCHLORIDE
     Route: 065
     Dates: start: 19991124
  17. DECADRON [Concomitant]
     Active Substance: DEXAMETHASONE
  18. KYTRIL [Concomitant]
     Active Substance: GRANISETRON HYDROCHLORIDE
     Route: 065
     Dates: start: 19991119
  19. TYLENOL [Concomitant]
     Active Substance: ACETAMINOPHEN
     Route: 048
     Dates: start: 19991124

REACTIONS (14)
  - Pyrexia [Unknown]
  - Fatigue [Unknown]
  - Lethargy [Unknown]
  - Cough [Unknown]
  - Breast cancer [Fatal]
  - Nausea [Unknown]
  - Metastases to lung [Unknown]
  - Constipation [Unknown]
  - Decreased appetite [Unknown]
  - Metastases to liver [Unknown]
  - Asthenia [Unknown]
  - Metastases to bone [Unknown]
  - Metastases to lung [Unknown]
  - Oral discomfort [Unknown]

NARRATIVE: CASE EVENT DATE: 19990427
